FAERS Safety Report 5905317-7 (Version None)
Quarter: 2008Q4

REPORT INFORMATION
  Report Type: 
  Country: None (occurrence: None)
  Receive Date: 20081001
  Receipt Date: 20080918
  Transmission Date: 20090506
  Serious: No
  Sender: FDA-Public Use
  Company Number: US-B.I. PHARMACEUTICALS,INC./RIDGEFIELD-2008-BP-14654BP

PATIENT
  Sex: Male

DRUGS (2)
  1. FLOMAX [Suspect]
     Indication: BENIGN PROSTATIC HYPERPLASIA
     Dosage: .4MG
     Route: 048
     Dates: start: 20080801
  2. LEXAPRO [Suspect]
     Dates: start: 20080801

REACTIONS (3)
  - JOINT SWELLING [None]
  - MIDDLE INSOMNIA [None]
  - OEDEMA PERIPHERAL [None]
